FAERS Safety Report 4365646-8 (Version None)
Quarter: 2004Q2

REPORT INFORMATION
  Report Type: 
  Country: None (occurrence: None)
  Receive Date: 20040521
  Receipt Date: 20040505
  Transmission Date: 20050107
  Serious: Yes (Hospitalization)
  Sender: FDA-Public Use
  Company Number: FR_040504064

PATIENT
  Age: 40 Year
  Sex: Male

DRUGS (1)
  1. HUMALOG [Suspect]
     Dosage: 10 ML/1 OTHER
     Route: 050
     Dates: start: 20040401, end: 20040401

REACTIONS (1)
  - INTENTIONAL OVERDOSE [None]
